FAERS Safety Report 7091300-8 (Version None)
Quarter: 2010Q4

REPORT INFORMATION
  Report Type: 
  Country: None (occurrence: None)
  Receive Date: 20101109
  Receipt Date: 20101102
  Transmission Date: 20110411
  Serious: Yes (Other)
  Sender: FDA-Public Use
  Company Number: ES-GENZYME-FABR-1001643

PATIENT

DRUGS (1)
  1. FABRAZYME [Suspect]
     Indication: FABRY'S DISEASE

REACTIONS (1)
  - CARDIOMYOPATHY [None]
